FAERS Safety Report 5260900-X (Version None)
Quarter: 2007Q1

REPORT INFORMATION
  Report Type: 
  Country: None (occurrence: None)
  Receive Date: 20070309
  Receipt Date: 20070228
  Transmission Date: 20070707
  Serious: Yes (Death)
  Sender: FDA-Public Use
  Company Number: US-ELI_LILLY_AND_COMPANY-US200702005755

PATIENT
  Age: 93 Year
  Sex: Female
  Weight: 54.421 kg

DRUGS (3)
  1. ZYPREXA [Suspect]
     Dosage: 5 MG, UNK
     Route: 048
     Dates: start: 20040801, end: 20040801
  2. REMERON [Concomitant]
  3. TYLENOL /USA/ [Concomitant]

REACTIONS (2)
  - DEATH [None]
  - DRUG ADMINISTRATION ERROR [None]
